FAERS Safety Report 4309321-4 (Version None)
Quarter: 2004Q1

REPORT INFORMATION
  Report Type: 
  Country: None (occurrence: None)
  Receive Date: 20040302
  Receipt Date: 20040126
  Transmission Date: 20041129
  Serious: Yes (Death)
  Sender: FDA-Public Use
  Company Number: DK-GLAXOSMITHKLINE-B0321184A

PATIENT
  Age: 81 Year
  Sex: Male

DRUGS (12)
  1. IMUREL [Suspect]
     Indication: POLYMYALGIA RHEUMATICA
     Dosage: 50MG PER DAY
     Route: 065
     Dates: start: 20031007
  2. PREDNISOLONE [Suspect]
     Dosage: 15MG PER DAY
     Route: 065
     Dates: start: 20030701, end: 20031208
  3. DIGOXIN [Suspect]
     Dosage: .25MG PER DAY
     Route: 065
     Dates: start: 20030818, end: 20031208
  4. FUROSEMIDE [Suspect]
     Route: 065
  5. SPIRONOLACTONE [Suspect]
     Dosage: 25MG PER DAY
     Route: 065
  6. ACETYL SALICYLIC ACID [Suspect]
     Dosage: 100MG PER DAY
     Route: 065
  7. DIPYRIDAMOL [Suspect]
     Dosage: 200MG TWICE PER DAY
     Route: 065
  8. CELECOXIB [Suspect]
     Dosage: 100MG TWICE PER DAY
     Route: 065
  9. PERINDOPRIL [Suspect]
     Dosage: 4MG PER DAY
     Route: 065
  10. CARVEDILOL [Suspect]
     Route: 065
  11. PARACETAMOL [Suspect]
     Route: 065
  12. CODEIN [Suspect]
     Route: 065

REACTIONS (11)
  - APLASTIC ANAEMIA [None]
  - BONE MARROW DEPRESSION [None]
  - CARDIOPULMONARY FAILURE [None]
  - CEREBRAL INFARCTION [None]
  - DEHYDRATION [None]
  - FALL [None]
  - HEMIPARESIS [None]
  - HYPOPLASTIC ANAEMIA [None]
  - PANCYTOPENIA [None]
  - PULMONARY EMBOLISM [None]
  - RENAL FUNCTION TEST ABNORMAL [None]
